FAERS Safety Report 4528583-1 (Version None)
Quarter: 2004Q4

REPORT INFORMATION
  Report Type: 
  Country: None (occurrence: None)
  Receive Date: 20041216
  Receipt Date: 20041207
  Transmission Date: 20050328
  Serious: Yes (Other)
  Sender: FDA-Public Use
  Company Number: PHNU2004DE04118

PATIENT
  Sex: Female

DRUGS (3)
  1. CLOZARIL [Suspect]
     Dosage: UNKNOWN
     Route: 048
  2. CLOZARIL [Suspect]
     Dosage: 250 MG/DAY
     Route: 048
  3. ANTINEOPLASTIC AGENTS [Concomitant]
     Indication: OVARIAN CANCER
     Dosage: UNKNOWN
     Route: 065

REACTIONS (2)
  - LEUKOPENIA [None]
  - OVARIAN CANCER [None]
